FAERS Safety Report 8059344-7 (Version None)
Quarter: 2012Q1

REPORT INFORMATION
  Report Type: 
  Country: None (occurrence: None)
  Receive Date: 20120120
  Receipt Date: 20120120
  Transmission Date: 20120608
  Serious: Yes (Life-Threatening, Disabling, Other)
  Sender: FDA-Public Use
  Company Number: None

PATIENT
  Age: 72 Year
  Sex: Male
  Weight: 96 kg

DRUGS (11)
  1. MULTI-VITAMIN [Concomitant]
  2. ASCORBIC ACID [Concomitant]
  3. MEGACE [Concomitant]
  4. COGENTIN [Concomitant]
  5. GLIMEPIRIDE [Concomitant]
  6. PROVENGE [Suspect]
     Indication: PROSTATE CANCER
     Dosage: 50,000 CELLS
     Route: 041
     Dates: start: 20111115, end: 20120112
  7. ASPIRIN [Concomitant]
  8. ZOCOR [Concomitant]
  9. ACETAMINOPHEN [Concomitant]
  10. CALCIUM WITH VITAMIN D [Concomitant]
  11. LISINOPRIL [Concomitant]

REACTIONS (6)
  - CHILLS [None]
  - FLUSHING [None]
  - URINARY INCONTINENCE [None]
  - NAUSEA [None]
  - VOMITING [None]
  - INFUSION RELATED REACTION [None]
